FAERS Safety Report 4954136-7 (Version None)
Quarter: 2006Q1

REPORT INFORMATION
  Report Type: 
  Country: None (occurrence: None)
  Receive Date: 20060327
  Receipt Date: 20060315
  Transmission Date: 20060701
  Serious: Yes (Other)
  Sender: FDA-Public Use
  Company Number: 2006GB00464

PATIENT
  Age: 28 Year
  Sex: Female

DRUGS (1)
  1. SEROQUEL [Suspect]
     Route: 048
     Dates: start: 20060310

REACTIONS (3)
  - CIRCULATORY COLLAPSE [None]
  - FALL [None]
  - LOSS OF CONSCIOUSNESS [None]
